FAERS Safety Report 4855856-5 (Version None)
Quarter: 2005Q4

REPORT INFORMATION
  Report Type: 
  Country: None (occurrence: None)
  Receive Date: 20051215
  Receipt Date: 20051215
  Transmission Date: 20060501
  Serious: No
  Sender: FDA-Public Use
  Company Number: None

PATIENT
  Age: 64 Year
  Sex: Male
  Weight: 57.1532 kg

DRUGS (11)
  1. ROSUVASTATIN 40 MG [Suspect]
     Indication: HYPERLIPIDAEMIA
     Dosage: 40 MG DAILY PO
     Route: 048
  2. CHLORHEXIDINE GLUCONATE [Concomitant]
  3. EFAVIRENZ [Concomitant]
  4. LAMIVUDINE [Concomitant]
  5. LOPERAMIDE [Concomitant]
  6. LOPINAVIR [Concomitant]
  7. RITONAVIR [Concomitant]
  8. LORATADINE [Concomitant]
  9. SELENIUM SULFIDE [Concomitant]
  10. TENOFOVIR DISOPROXIL FUMARATE [Concomitant]
  11. METRONIDAZOLE [Concomitant]

REACTIONS (1)
  - MUSCULAR WEAKNESS [None]
